FAERS Safety Report 5372378-6 (Version None)
Quarter: 2007Q2

REPORT INFORMATION
  Report Type: 
  Country: None (occurrence: None)
  Receive Date: 20070627
  Receipt Date: 20070508
  Transmission Date: 20071010
  Serious: Yes (Other)
  Sender: FDA-Public Use
  Company Number: US-BRISTOL-MYERS SQUIBB COMPANY-13648290

PATIENT
  Sex: Male

DRUGS (9)
  1. SPRYCEL [Suspect]
     Indication: CHRONIC MYELOID LEUKAEMIA
     Route: 048
     Dates: start: 20060824, end: 20060901
  2. SINGULAIR [Concomitant]
     Route: 048
  3. SPIRONOLACTONE [Concomitant]
  4. ALTACE [Concomitant]
  5. FLOMAX [Concomitant]
  6. LASIX [Concomitant]
     Route: 048
  7. METOPROLOL SUCCINATE [Concomitant]
  8. ADVAIR DISKUS 100/50 [Concomitant]
  9. COMBIVENT [Concomitant]

REACTIONS (3)
  - ASCITES [None]
  - PLEURAL EFFUSION [None]
  - WEIGHT INCREASED [None]
